FAERS Safety Report 24814079 (Version 1)
Quarter: 2025Q1

REPORT INFORMATION
  Report Type: Spontaneous
  Country: DE (occurrence: DE)
  Receive Date: 20250107
  Receipt Date: 20250107
  Transmission Date: 20250408
  Serious: Yes (Life-Threatening, Hospitalization, Other)
  Sender: MSN LABORATORIES PRIVATE LIMITED
  Company Number: DE-AMGEN-DEUSP2023222058

PATIENT

DRUGS (11)
  1. BORTEZOMIB [Suspect]
     Active Substance: BORTEZOMIB
     Indication: Plasma cell myeloma refractory
     Route: 065
  2. CYCLOPHOSPHAMIDE [Suspect]
     Active Substance: CYCLOPHOSPHAMIDE
     Indication: Product used for unknown indication
     Route: 065
  3. CARFILZOMIB [Suspect]
     Active Substance: CARFILZOMIB
     Indication: Plasma cell myeloma refractory
     Route: 065
  4. FILGRASTIM [Suspect]
     Active Substance: FILGRASTIM
     Indication: Neutropenia
     Route: 065
  5. DEXAMETHASONE [Suspect]
     Active Substance: DEXAMETHASONE
     Indication: Plasma cell myeloma refractory
     Route: 065
  6. ISATUXIMAB [Suspect]
     Active Substance: ISATUXIMAB
     Indication: Plasma cell myeloma refractory
     Route: 065
  7. FLUDARABINE [Suspect]
     Active Substance: FLUDARABINE PHOSPHATE
     Indication: Product used for unknown indication
     Route: 065
  8. POMALIDOMIDE [Concomitant]
     Active Substance: POMALIDOMIDE
     Route: 065
  9. ELOTUZUMAB [Concomitant]
     Active Substance: ELOTUZUMAB
     Route: 065
  10. ETOPOSIDE [Concomitant]
     Active Substance: ETOPOSIDE
     Route: 065
  11. DARATUMUMAB [Suspect]
     Active Substance: DARATUMUMAB
     Indication: Plasma cell myeloma refractory
     Route: 065

REACTIONS (10)
  - Cytokine release syndrome [Unknown]
  - Electrocardiogram QT prolonged [Unknown]
  - Acute kidney injury [Unknown]
  - Plasma cell myeloma [Unknown]
  - Hypocalcaemia [Unknown]
  - Neutropenia [Unknown]
  - Tachycardia [Unknown]
  - Thrombocytopenia [Unknown]
  - Anaemia [Unknown]
  - Treatment failure [Unknown]
